FAERS Safety Report 6970604-0 (Version None)
Quarter: 2010Q3

REPORT INFORMATION
  Report Type: 
  Country: None (occurrence: None)
  Receive Date: 20100908
  Receipt Date: 20100827
  Transmission Date: 20110219
  Serious: Yes (Other)
  Sender: FDA-Public Use
  Company Number: PHHY2010US57090

PATIENT

DRUGS (1)
  1. RECLAST [Suspect]
     Dosage: 5 MG,
     Route: 042

REACTIONS (2)
  - OSTEOPOROTIC FRACTURE [None]
  - PAIN [None]
